FAERS Safety Report 25321509 (Version 2)
Quarter: 2025Q2

REPORT INFORMATION
  Report Type: Report from Study
  Country: US (occurrence: US)
  Receive Date: 20250516
  Receipt Date: 20250519
  Transmission Date: 20250717
  Serious: Yes (Other)
  Sender: ALEXION PHARMACEUTICALS
  Company Number: US-AstraZeneca-CH-00869548A

PATIENT
  Weight: 62.494 kg

DRUGS (1)
  1. TAGRISSO [Suspect]
     Active Substance: OSIMERTINIB
     Indication: Lung neoplasm malignant
     Dosage: 80 MILLIGRAM, QD
     Route: 065

REACTIONS (3)
  - Retroperitoneal cancer [Unknown]
  - Malignant peritoneal neoplasm [Unknown]
  - Lung carcinoma cell type unspecified stage 0 [Unknown]
